FAERS Safety Report 9716812 (Version 2)
Quarter: 2013Q4

REPORT INFORMATION
  Report Type: Spontaneous
  Country: US (occurrence: US)
  Receive Date: 20131127
  Receipt Date: 20131127
  Transmission Date: 20140711
  Serious: No
  Sender: FDA-Public Use
  Company Number: US-ENDO PHARMACEUTICALS INC.-HYDR20110024

PATIENT
  Sex: Female

DRUGS (8)
  1. HYDROCORTISONE TABLETS 10MG [Suspect]
     Indication: ADDISON^S DISEASE
     Route: 048
     Dates: start: 201004
  2. CRANBERRY [Suspect]
  3. FLUORINEF [Concomitant]
  4. SERTRALINE [Concomitant]
  5. VYTORIN [Concomitant]
  6. METFORMIN [Concomitant]
  7. LEVOTHYROXINE [Concomitant]
  8. BYETTA [Concomitant]

REACTIONS (2)
  - Drug effect decreased [Recovered/Resolved]
  - Product quality issue [Unknown]
